FAERS Safety Report 9271038 (Version 1)
Quarter: 2013Q2

REPORT INFORMATION
  Report Type: Spontaneous
  Country: PL (occurrence: PL)
  Receive Date: 20130506
  Receipt Date: 20130506
  Transmission Date: 20140414
  Serious: Yes (Other)
  Sender: FDA-Public Use
  Company Number: PL-JNJFOC-20130414415

PATIENT
  Sex: 0

DRUGS (6)
  1. CLADRIBINE [Suspect]
     Indication: ACUTE MYELOID LEUKAEMIA
     Dosage: ON DAYS 1-5
     Route: 065
  2. IDARUBICIN [Suspect]
     Indication: ACUTE MYELOID LEUKAEMIA
     Dosage: ON DAYS 1-3
     Route: 042
  3. CYTARABINE [Suspect]
     Indication: ACUTE MYELOID LEUKAEMIA
     Dosage: CONTINUOUS INFUSION ON DAYS 1-7
     Route: 065
  4. DAUNORUBICIN [Suspect]
     Indication: ACUTE MYELOID LEUKAEMIA
     Route: 042
  5. CYTOSINE ARABINOSIDE [Suspect]
     Indication: ACUTE MYELOID LEUKAEMIA
     Dosage: AS A PART OF HAM AND HD ARAC
     Route: 065
  6. MITOXANTRONE [Suspect]
     Indication: ACUTE MYELOID LEUKAEMIA
     Dosage: AS A PART OF INTENSIVE CONSOLIDATION UNDER HAM REGIMEN
     Route: 065

REACTIONS (11)
  - Thrombocytopenia [Unknown]
  - Agranulocytosis [Unknown]
  - Infection [Unknown]
  - Mucosal inflammation [Unknown]
  - Polyneuropathy [Unknown]
  - Cardiac disorder [Unknown]
  - Hepatic function abnormal [Unknown]
  - Renal impairment [Unknown]
  - Vomiting [Unknown]
  - Diarrhoea [Unknown]
  - Alopecia [Unknown]
